FAERS Safety Report 14852127 (Version 2)
Quarter: 2019Q1

REPORT INFORMATION
  Report Type: Spontaneous
  Country: US (occurrence: US)
  Receive Date: 20180507
  Receipt Date: 20190319
  Transmission Date: 20190417
  Serious: Yes (Death, Other)
  Sender: FDA-Public Use
  Company Number: US-ASTRAZENECA-2018SE51948

PATIENT
  Sex: Male

DRUGS (23)
  1. NEXIUM [Suspect]
     Active Substance: ESOMEPRAZOLE MAGNESIUM
     Route: 048
     Dates: start: 2001, end: 2011
  2. NEPHROCAP [Concomitant]
  3. PREVACID 24 HR [Concomitant]
     Active Substance: LANSOPRAZOLE
  4. PROTONIX [Suspect]
     Active Substance: PANTOPRAZOLE SODIUM
     Route: 065
     Dates: start: 2001, end: 2011
  5. LISINOPRIL. [Concomitant]
     Active Substance: LISINOPRIL
  6. FOLIC ACID. [Concomitant]
     Active Substance: FOLIC ACID
  7. NEXIUM 24HR [Suspect]
     Active Substance: ESOMEPRAZOLE MAGNESIUM
     Route: 048
     Dates: start: 2001, end: 2011
  8. PRILOSEC OTC [Suspect]
     Active Substance: OMEPRAZOLE MAGNESIUM
     Route: 048
     Dates: start: 2001, end: 2011
  9. NOVOLOG [Concomitant]
     Active Substance: INSULIN ASPART
  10. MINOXIDIL. [Concomitant]
     Active Substance: MINOXIDIL
  11. VIMOVO [Suspect]
     Active Substance: ESOMEPRAZOLE MAGNESIUM\NAPROXEN
     Route: 048
     Dates: start: 2001, end: 2011
  12. PRILOSEC [Suspect]
     Active Substance: OMEPRAZOLE MAGNESIUM
     Route: 048
     Dates: start: 2001, end: 2011
  13. LASIX [Concomitant]
     Active Substance: FUROSEMIDE
  14. PREVACID [Suspect]
     Active Substance: LANSOPRAZOLE
     Route: 065
     Dates: start: 2001, end: 2011
  15. ZOCOR [Concomitant]
     Active Substance: SIMVASTATIN
  16. PANTOPRAZOLE [Concomitant]
     Active Substance: PANTOPRAZOLE
  17. LANTUS [Concomitant]
     Active Substance: INSULIN GLARGINE
  18. DEXILANT [Suspect]
     Active Substance: DEXLANSOPRAZOLE
     Route: 065
     Dates: start: 2001, end: 2011
  19. ZEMPLAR [Concomitant]
     Active Substance: PARICALCITOL
  20. CARVEDILOL. [Concomitant]
     Active Substance: CARVEDILOL
  21. HUMALOG [Concomitant]
     Active Substance: INSULIN LISPRO
  22. ACIPHEX [Suspect]
     Active Substance: RABEPRAZOLE SODIUM
     Route: 065
     Dates: start: 2001, end: 2011
  23. EPOGEN [Concomitant]
     Active Substance: ERYTHROPOIETIN

REACTIONS (7)
  - Chronic kidney disease [Unknown]
  - Cardiac failure [Fatal]
  - Acute myocardial infarction [Fatal]
  - Diabetic retinopathy [Fatal]
  - Renal failure [Fatal]
  - Diabetes mellitus [Fatal]
  - Renal failure [Unknown]
